FAERS Safety Report 5133019-6 (Version None)
Quarter: 2006Q4

REPORT INFORMATION
  Report Type: 
  Country: None (occurrence: None)
  Receive Date: 20061018
  Receipt Date: 20061013
  Transmission Date: 20070319
  Serious: Yes (Hospitalization)
  Sender: FDA-Public Use
  Company Number: TPG2006A00465

PATIENT
  Age: 66 Year
  Sex: Male

DRUGS (9)
  1. TRENANTONE [Suspect]
     Indication: PROSTATE CANCER
     Dosage: 11.25 MG,1 IN 3 M
     Route: 058
     Dates: start: 20060101, end: 20060403
  2. HCT BETA                (HYDROCHLOROTHIAZIDE) [Concomitant]
  3. CORVO     (ENALAPRIL MALEATE) [Concomitant]
  4. SALOSPIR    (ACETYLSALICYLIC ACID) [Concomitant]
  5. ATORVASTATIN CALCIUM [Concomitant]
  6. ATENOLOL [Concomitant]
  7. ALLOPURINOL [Concomitant]
  8. SERETIDE DISKUS         (SERETIDE) [Concomitant]
  9. BEROVENT        (BREVA) [Concomitant]

REACTIONS (14)
  - ADRENAL MASS [None]
  - ARTERIOSCLEROSIS [None]
  - BLADDER DISORDER [None]
  - CALCINOSIS [None]
  - DYSURIA [None]
  - EMPHYSEMA [None]
  - GASTROENTERITIS RADIATION [None]
  - GENERAL PHYSICAL HEALTH DETERIORATION [None]
  - HEPATIC CIRRHOSIS [None]
  - HEPATIC STEATOSIS [None]
  - HEPATOCELLULAR DAMAGE [None]
  - HEPATOTOXICITY [None]
  - HIATUS HERNIA [None]
  - PULSE ABSENT [None]
